FAERS Safety Report 5081399-2 (Version None)
Quarter: 2006Q3

REPORT INFORMATION
  Report Type: 
  Country: None (occurrence: None)
  Receive Date: 20060811
  Receipt Date: 20060731
  Transmission Date: 20061208
  Serious: Yes (Hospitalization)
  Sender: FDA-Public Use
  Company Number: MEDI-0004791

PATIENT
  Age: 54 Year
  Sex: Male
  Weight: 63.5943 kg

DRUGS (11)
  1. ETHYOL [Suspect]
     Indication: RADIOTHERAPY
     Dosage: SEE IMAGE
     Route: 058
     Dates: start: 20060530, end: 20060630
  2. ETHYOL [Suspect]
     Indication: RADIOTHERAPY
     Dosage: SEE IMAGE
     Route: 058
     Dates: start: 20060711, end: 20060719
  3. RADIATION THERAPY [Concomitant]
  4. CARBOTAXOL [Concomitant]
  5. ZOFRAN [Concomitant]
  6. OXYCODONE HCL [Concomitant]
  7. MAGIC MOUTHWASH [Concomitant]
  8. CLODERM TOPICAL LOTION (CLOCORTOLONE PIVALATE) [Concomitant]
  9. LIDOCAINE TOPICAL OINTMENT (LIDOCAINE) [Concomitant]
  10. XENADERM TOPICAL OINTMENT (TRYPSIN, MYROXYLON BALSAMUM VAR. PEREIRAE B [Concomitant]
  11. XYLOCAINE 2% VISCOUS (LIDOCAINE HYDROCHLORIDE) [Concomitant]

REACTIONS (11)
  - COLD SWEAT [None]
  - CONDITION AGGRAVATED [None]
  - DEHYDRATION [None]
  - ERUCTATION [None]
  - HEADACHE [None]
  - HYPERHIDROSIS [None]
  - MUCOSAL INFLAMMATION [None]
  - NEUTROPENIA [None]
  - PHARYNGOLARYNGEAL PAIN [None]
  - RASH PRURITIC [None]
  - TREMOR [None]
